FAERS Safety Report 14919862 (Version 1)
Quarter: 2018Q2

REPORT INFORMATION
  Report Type: Spontaneous
  Country: US (occurrence: US)
  Receive Date: 20180521
  Receipt Date: 20180521
  Transmission Date: 20180711
  Serious: No
  Sender: FDA-Public Use
  Company Number: US-BAYER-2018-090221

PATIENT
  Age: 83 Year
  Sex: Male
  Weight: 82 kg

DRUGS (2)
  1. PHILLIPS MAGNESIA [Concomitant]
     Indication: GASTROINTESTINAL DISORDER
     Dosage: 2 DF, PRN
     Route: 048
  2. MIRALAX [Suspect]
     Active Substance: POLYETHYLENE GLYCOL 3350
     Indication: GASTROINTESTINAL DISORDER
     Dosage: 1 DF, QD
     Route: 048

REACTIONS (2)
  - Drug ineffective [Unknown]
  - Product prescribing issue [Unknown]
